FAERS Safety Report 6332678-X (Version None)
Quarter: 2009Q3

REPORT INFORMATION
  Report Type: 
  Country: None (occurrence: None)
  Receive Date: 20090828
  Receipt Date: 20090819
  Transmission Date: 20100115
  Serious: Yes (Other)
  Sender: FDA-Public Use
  Company Number: US-ASTRAZENECA-2009SE08877

PATIENT
  Age: 82 Year
  Sex: Male
  Weight: 68 kg

DRUGS (6)
  1. TOPROL-XL [Suspect]
     Route: 048
     Dates: start: 19990101
  2. CRESTOR [Suspect]
     Route: 048
     Dates: start: 20090101
  3. NORVASC [Concomitant]
  4. COUMADIN [Concomitant]
  5. TRICOR [Concomitant]
  6. VITAMIN B-12 [Concomitant]

REACTIONS (5)
  - BLADDER CANCER [None]
  - CHEST PAIN [None]
  - CONFUSIONAL STATE [None]
  - HAEMATOMA [None]
  - HEART RATE IRREGULAR [None]
